FAERS Safety Report 7167315-8 (Version None)
Quarter: 2010Q4

REPORT INFORMATION
  Report Type: 
  Country: None (occurrence: None)
  Receive Date: 20101216
  Receipt Date: 20101201
  Transmission Date: 20110411
  Serious: Yes (Other)
  Sender: FDA-Public Use
  Company Number: US-ROCHE-724576

PATIENT
  Sex: Female
  Weight: 68 kg

DRUGS (1)
  1. ACCUTANE [Suspect]
     Indication: ACNE
     Route: 065
     Dates: start: 19930101, end: 19940301

REACTIONS (9)
  - ABDOMINAL PAIN [None]
  - ANAEMIA [None]
  - ANAL SKIN TAGS [None]
  - CROHN'S DISEASE [None]
  - DEPRESSION [None]
  - IMPAIRED GASTRIC EMPTYING [None]
  - NAUSEA [None]
  - PERINEAL FISTULA [None]
  - RECTAL HAEMORRHAGE [None]
